FAERS Safety Report 5322377-5 (Version None)
Quarter: 2007Q2

REPORT INFORMATION
  Report Type: 
  Country: None (occurrence: None)
  Receive Date: 20070511
  Receipt Date: 20070510
  Transmission Date: 20071010
  Serious: Yes (Hospitalization)
  Sender: FDA-Public Use
  Company Number: A0642026A

PATIENT
  Age: 70 Year
  Sex: Female
  Weight: 39.1 kg

DRUGS (3)
  1. NICODERM CQ [Suspect]
  2. ADVAIR DISKUS 100/50 [Concomitant]
  3. LEVALBUTEROL HCL [Concomitant]

REACTIONS (19)
  - ANXIETY [None]
  - ASTHENIA [None]
  - BLOOD PRESSURE DECREASED [None]
  - CATHETER SITE HAEMORRHAGE [None]
  - CHEMICAL POISONING [None]
  - CHEST DISCOMFORT [None]
  - CHEST PAIN [None]
  - CYANOSIS [None]
  - DISTURBANCE IN ATTENTION [None]
  - DYSPNOEA [None]
  - EPISTAXIS [None]
  - HAEMATEMESIS [None]
  - MALAISE [None]
  - OVERDOSE [None]
  - SALIVARY HYPERSECRETION [None]
  - SENSATION OF FOREIGN BODY [None]
  - THINKING ABNORMAL [None]
  - THROMBOSIS [None]
  - VOMITING [None]
